FAERS Safety Report 20469286 (Version 1)
Quarter: 2022Q1

REPORT INFORMATION
  Report Type: Spontaneous
  Country: CA (occurrence: CA)
  Receive Date: 20220214
  Receipt Date: 20220214
  Transmission Date: 20220423
  Serious: Yes (Other)
  Sender: FDA-Public Use
  Company Number: CA-UPSHER-SMITH LABORATORIES, LLC-2022USL00088

PATIENT
  Age: 17 Year
  Sex: Male

DRUGS (4)
  1. TESTOSTERONE [Suspect]
     Active Substance: TESTOSTERONE
     Indication: Transgender hormonal therapy
     Dosage: UNK
     Route: 058
  2. TESTOSTERONE [Suspect]
     Active Substance: TESTOSTERONE
     Dosage: ADJUSTED FOR AGE GRADUALLY
     Route: 058
  3. TESTOSTERONE [Suspect]
     Active Substance: TESTOSTERONE
     Dosage: 70 MG, 1X/WEEK
     Route: 058
  4. TESTOSTERONE [Suspect]
     Active Substance: TESTOSTERONE
     Dosage: 50 MG, 1X/WEEK (TAPERED DOWN TO THIS DOSE)
     Route: 058

REACTIONS (1)
  - Idiopathic intracranial hypertension [Recovered/Resolved]
